FAERS Safety Report 20636688 (Version 1)
Quarter: 2022Q1

REPORT INFORMATION
  Report Type: Report from Study
  Country: IT (occurrence: IT)
  Receive Date: 20220325
  Receipt Date: 20220325
  Transmission Date: 20220424
  Serious: Yes (Other)
  Sender: FDA-Public Use
  Company Number: None

PATIENT
  Age: 29 Year
  Sex: Male

DRUGS (5)
  1. QUETIAPINE FUMARATE [Suspect]
     Active Substance: QUETIAPINE FUMARATE
     Indication: Drug abuse
     Dosage: 1 DF , ADDITIONAL INFO : ABUSE / MISUSE
     Route: 048
     Dates: start: 20211211, end: 20211211
  2. VALPROATE SODIUM [Suspect]
     Active Substance: VALPROATE SODIUM
     Indication: Drug abuse
     Dosage: 1 DF , ADDITIONAL INFO : ABUSE / MISUSE
     Route: 048
     Dates: start: 20211211, end: 20211211
  3. TAVOR (LORAZEPAM) [Suspect]
     Active Substance: LORAZEPAM
     Indication: Drug abuse
     Dosage: 1 DF , ADDITIONAL INFO : ABUSE / MISUSE , STRENGTH : 2.5 MG
     Route: 048
     Dates: start: 20211211, end: 20211211
  4. BROMAZEPAM [Suspect]
     Active Substance: BROMAZEPAM
     Indication: Drug abuse
     Dosage: 1 DF , ADDITIONAL INFO : ABUSE / MISUSE , STRENGTH : 2.5 MG/ML
     Route: 048
     Dates: start: 20211211, end: 20211211
  5. TECFIDERA [Concomitant]
     Active Substance: DIMETHYL FUMARATE
     Dosage: STRENGTH : 240 MG

REACTIONS (4)
  - Aggression [Recovered/Resolved]
  - Drug abuse [Recovered/Resolved]
  - Alcohol abuse [Recovered/Resolved]
  - Psychomotor hyperactivity [Recovered/Resolved]

NARRATIVE: CASE EVENT DATE: 20211211
